FAERS Safety Report 7420476-5 (Version None)
Quarter: 2011Q2

REPORT INFORMATION
  Report Type: 
  Country: None (occurrence: None)
  Receive Date: 20110418
  Receipt Date: 20110408
  Transmission Date: 20111010
  Serious: Yes (Hospitalization)
  Sender: FDA-Public Use
  Company Number: US-JNJFOC-20110106824

PATIENT
  Sex: Female
  Weight: 54.43 kg

DRUGS (16)
  1. LEVAQUIN [Suspect]
     Route: 048
  2. HYDRALAZINE [Concomitant]
     Indication: BLOOD PRESSURE
     Route: 048
  3. TRAZODONE [Concomitant]
     Indication: SLEEP DISORDER
     Dosage: AT BEDTIME DAILY
     Route: 048
  4. LEVAQUIN [Suspect]
     Indication: BACTERIAL INFECTION
     Route: 042
  5. PAROXETINE [Concomitant]
     Indication: ANXIETY
     Dosage: DAILY AT BEDTIME
     Route: 048
  6. LEVAQUIN [Suspect]
     Indication: PNEUMONIA
     Route: 042
  7. NORVASC [Concomitant]
     Indication: BLOOD PRESSURE
     Route: 048
  8. PHENERGAN HCL [Concomitant]
     Route: 065
  9. METFORMIN HCL [Concomitant]
     Indication: DIABETES MELLITUS
     Route: 048
  10. LISINOPRIL AND HYDROCHLOROTHIAZIDE [Concomitant]
     Indication: BLOOD PRESSURE
     Route: 048
  11. LASIX [Concomitant]
     Indication: FLUID RETENTION
     Route: 048
  12. PLAVIX [Concomitant]
     Indication: CARDIAC DISORDER
     Route: 048
  13. JANUVIA [Concomitant]
     Indication: DIABETES MELLITUS
     Route: 048
  14. ZOCOR [Concomitant]
     Indication: BLOOD CHOLESTEROL
     Route: 048
  15. PROTONIX [Concomitant]
     Indication: GASTRIC DISORDER
     Route: 048
  16. COREG [Concomitant]
     Indication: CARDIAC DISORDER
     Route: 048

REACTIONS (5)
  - FEELING JITTERY [None]
  - CONFUSIONAL STATE [None]
  - NAUSEA [None]
  - ANXIETY [None]
  - INSOMNIA [None]
